FAERS Safety Report 5384226-9 (Version None)
Quarter: 2007Q3

REPORT INFORMATION
  Report Type: 
  Country: None (occurrence: None)
  Receive Date: 20070709
  Receipt Date: 20060608
  Transmission Date: 20080115
  Serious: Yes (Other)
  Sender: FDA-Public Use
  Company Number: US-2006-012398

PATIENT
  Age: 19 Year
  Sex: Female
  Weight: 68 kg

DRUGS (1)
  1. ULTRAVIST 300 [Suspect]
     Indication: COMPUTERISED TOMOGRAM ABDOMEN
     Dosage: 92 ML, 1 DOSE, INTRAVENOUS
     Route: 042
     Dates: start: 20060518, end: 20060518

REACTIONS (4)
  - BLOOD PRESSURE DIASTOLIC INCREASED [None]
  - DYSPNOEA [None]
  - PRURITUS [None]
  - URTICARIA [None]
